FAERS Safety Report 9933652 (Version 2)
Quarter: 2014Q1

REPORT INFORMATION
  Report Type: Report from Study
  Country: US (occurrence: US)
  Receive Date: 20140228
  Receipt Date: 20140228
  Transmission Date: 20141002
  Serious: No
  Sender: FDA-Public Use
  Company Number: US-MYLANLABS-2013S1028009

PATIENT
  Sex: Female
  Weight: 71.67 kg

DRUGS (4)
  1. AMNESTEEM CAPSULES [Suspect]
     Indication: ACNE
     Dates: start: 20130807, end: 20131212
  2. CLARAVIS [Suspect]
     Indication: ACNE
  3. CLONAZEPAM [Concomitant]
  4. MIRENA [Concomitant]

REACTIONS (1)
  - Irritable bowel syndrome [Not Recovered/Not Resolved]
